FAERS Safety Report 11472053 (Version 2)
Quarter: 2015Q4

REPORT INFORMATION
  Report Type: Spontaneous
  Country: US (occurrence: US)
  Receive Date: 20150908
  Receipt Date: 20151007
  Transmission Date: 20160304
  Serious: Yes (Hospitalization)
  Sender: FDA-Public Use
  Company Number: US-NPS_PHARMACEUTICALS-001544

PATIENT
  Age: 90 Year
  Sex: Female

DRUGS (13)
  1. AMIODARONE [Concomitant]
     Active Substance: AMIODARONE
     Dosage: [DF] ONCE DAILY
  2. D5 1/2 NS [Concomitant]
     Dates: start: 2015
  3. TPN [Concomitant]
     Active Substance: AMINO ACIDS\DEXTROSE\ELECTROLYTES NOS\SOYBEAN OIL
     Indication: MEDICAL DIET
     Dosage: DF
  4. GATTEX [Suspect]
     Active Substance: TEDUGLUTIDE\WATER
     Dosage: DF
     Route: 058
     Dates: start: 2015
  5. LOMOTIL [Concomitant]
     Active Substance: ATROPINE SULFATE\DIPHENOXYLATE HYDROCHLORIDE
     Dosage: DOSE REDUCED
  6. ZANTAC [Concomitant]
     Active Substance: RANITIDINE HYDROCHLORIDE
     Indication: GASTROOESOPHAGEAL REFLUX DISEASE
  7. LOMOTIL [Concomitant]
     Active Substance: ATROPINE SULFATE\DIPHENOXYLATE HYDROCHLORIDE
     Indication: DIARRHOEA
     Dosage: STREN/VOLUM: 1 TAB|FREQU: TID
  8. GATTEX [Suspect]
     Active Substance: TEDUGLUTIDE\WATER
     Indication: SHORT-BOWEL SYNDROME
     Route: 058
     Dates: start: 20141027, end: 20150826
  9. TRAZODONE [Concomitant]
     Active Substance: TRAZODONE HYDROCHLORIDE
     Indication: INSOMNIA
     Dosage: STREN/VOLUM: 1 TABLET|FREQU: 2 TABS AT HS, 1 TAB IF AWAKENS DURING THE NIGHT
     Route: 048
  10. D5 1/2 NS [Concomitant]
     Dosage: DF
  11. CORDARONE [Concomitant]
     Active Substance: AMIODARONE HYDROCHLORIDE
     Indication: ATRIAL FIBRILLATION
  12. ZANTAC [Concomitant]
     Active Substance: RANITIDINE HYDROCHLORIDE
     Indication: GASTROOESOPHAGEAL REFLUX DISEASE
     Dosage: [DF] BID
  13. LOPRESSOR [Concomitant]
     Active Substance: METOPROLOL TARTRATE
     Indication: HYPERTENSION

REACTIONS (13)
  - Wound drainage [Recovering/Resolving]
  - Weight decreased [Unknown]
  - Vomiting [Unknown]
  - Ascites [Unknown]
  - Cyst [Not Recovered/Not Resolved]
  - Gastrointestinal stoma output abnormal [Not Recovered/Not Resolved]
  - Depression [Unknown]
  - Hyperkalaemia [Recovered/Resolved]
  - Gastrointestinal stoma complication [Not Recovered/Not Resolved]
  - Arthralgia [Not Recovered/Not Resolved]
  - Acute kidney injury [Recovered/Resolved]
  - Nodule [Not Recovered/Not Resolved]
  - Wound [Recovering/Resolving]

NARRATIVE: CASE EVENT DATE: 2014
